FAERS Safety Report 12257519 (Version 5)
Quarter: 2016Q2

REPORT INFORMATION
  Report Type: Report from Study
  Country: US (occurrence: US)
  Receive Date: 20160412
  Receipt Date: 20160526
  Transmission Date: 20160815
  Serious: Yes (Hospitalization, Other)
  Sender: FDA-Public Use
  Company Number: US-TEVA-650599USA

PATIENT
  Age: 35 Year
  Sex: Male

DRUGS (4)
  1. HALDOL [Concomitant]
     Active Substance: HALOPERIDOL
     Dosage: 60 MILLIGRAM DAILY;
     Route: 048
  2. CLOZAPINE. [Suspect]
     Active Substance: CLOZAPINE
     Route: 065
     Dates: end: 20160405
  3. HALDOL DECANOATE [Concomitant]
     Active Substance: HALOPERIDOL DECANOATE
     Dosage: 100 MG/CC, TWO, EVERY 28 DAYS
     Route: 030
  4. COGENTIN [Concomitant]
     Active Substance: BENZTROPINE MESYLATE
     Dosage: 2 MILLIGRAM DAILY;
     Route: 048

REACTIONS (1)
  - Granulocytopenia [Not Recovered/Not Resolved]

NARRATIVE: CASE EVENT DATE: 20160404
